FAERS Safety Report 5735253-0 (Version None)
Quarter: 2008Q2

REPORT INFORMATION
  Report Type: 
  Country: None (occurrence: None)
  Receive Date: 20080508
  Receipt Date: 20080508
  Transmission Date: 20081010
  Serious: Yes (Other)
  Sender: FDA-Public Use
  Company Number: None

PATIENT
  Age: 33 Year
  Sex: Female
  Weight: 60.3284 kg

DRUGS (2)
  1. FLUOXETINE [Suspect]
     Indication: DEPRESSION
     Dosage: 10MG DAILY FOR 7 DAYS PO
     Route: 048
     Dates: start: 20080419, end: 20080501
  2. FLUOXETINE [Suspect]
     Dosage: 20MG DAILY PO
     Route: 048

REACTIONS (2)
  - CONTUSION [None]
  - URTICARIA [None]
